FAERS Safety Report 15644426 (Version 11)
Quarter: 2020Q3

REPORT INFORMATION
  Report Type: Spontaneous
  Country: US (occurrence: US)
  Receive Date: 20181121
  Receipt Date: 20200715
  Transmission Date: 20201102
  Serious: Yes (Hospitalization, Other)
  Sender: FDA-Public Use
  Company Number: US-ACTELION-A-NJ2018-182109

PATIENT
  Sex: Female
  Weight: 58.05 kg

DRUGS (5)
  1. ADCIRCA [Concomitant]
     Active Substance: TADALAFIL
  2. OPSUMIT [Suspect]
     Active Substance: MACITENTAN
     Indication: PULMONARY ARTERIAL HYPERTENSION
     Dosage: 10 MG, QD
     Route: 048
     Dates: start: 20141013
  3. VENTAVIS [Suspect]
     Active Substance: ILOPROST
     Indication: PULMONARY ARTERIAL HYPERTENSION
     Dosage: 6 UNK, QD
     Route: 055
  4. VENTAVIS [Suspect]
     Active Substance: ILOPROST
     Dosage: 5 MCG INHALED 6X QD
     Route: 055
     Dates: start: 20121113
  5. WARFARIN [Concomitant]
     Active Substance: WARFARIN

REACTIONS (14)
  - Fluid retention [Recovered/Resolved]
  - Plantar fasciitis [Unknown]
  - Unevaluable event [Recovered/Resolved]
  - Pleural effusion [Unknown]
  - Cardiac operation [Recovered/Resolved]
  - Vocal cord disorder [Recovered/Resolved]
  - Swelling [Recovered/Resolved]
  - Dyspnoea exertional [Unknown]
  - Hospitalisation [Unknown]
  - Dyspnoea [Recovered/Resolved]
  - Hypercholesterolaemia [Unknown]
  - Bursitis [Unknown]
  - Feeling abnormal [Unknown]
  - Oedema [Unknown]
